FAERS Safety Report 9740004 (Version 3)
Quarter: 2014Q4

REPORT INFORMATION
  Report Type: Spontaneous
  Country: US (occurrence: US)
  Receive Date: 20131209
  Receipt Date: 20141205
  Transmission Date: 20150529
  Serious: No
  Sender: FDA-Public Use
  Company Number: US-ASTELLAS-2013US012627

PATIENT
  Age: 60 Year
  Sex: Male

DRUGS (2)
  1. XTANDI [Suspect]
     Active Substance: ENZALUTAMIDE
     Indication: PROSTATE CANCER
     Route: 048
     Dates: start: 20131119
  2. XTANDI [Suspect]
     Active Substance: ENZALUTAMIDE
     Indication: ILL-DEFINED DISORDER

REACTIONS (9)
  - Asthenia [Unknown]
  - Paraesthesia [Unknown]
  - Hyperacusis [Unknown]
  - Musculoskeletal stiffness [Unknown]
  - Musculoskeletal pain [Unknown]
  - Muscular weakness [Unknown]
  - Drug ineffective [Unknown]
  - Drug intolerance [Unknown]
  - Myalgia [Unknown]

NARRATIVE: CASE EVENT DATE: 20131122
